FAERS Safety Report 4733950-7 (Version None)
Quarter: 2005Q3

REPORT INFORMATION
  Report Type: 
  Country: None (occurrence: None)
  Receive Date: 20050721
  Receipt Date: 20050512
  Transmission Date: 20060218
  Serious: No
  Sender: FDA-Public Use
  Company Number: 2005SP000728

PATIENT
  Age: 39 Year
  Sex: Female
  Weight: 68.0396 kg

DRUGS (2)
  1. LUNESTA [Suspect]
     Dosage: 2 MG; 3 MG; HS : ORAL
     Route: 048
     Dates: start: 20050413, end: 20050413
  2. LUNESTA [Suspect]
     Dosage: 2 MG; 3 MG; HS : ORAL
     Route: 048
     Dates: start: 20050414, end: 20050414

REACTIONS (2)
  - DRUG INEFFECTIVE [None]
  - INSOMNIA [None]
